FAERS Safety Report 8954423 (Version 1)
Quarter: 2012Q4

REPORT INFORMATION
  Report Type: 
  Country: CA (occurrence: CA)
  Receive Date: 20121210
  Receipt Date: 20121210
  Transmission Date: 20130627
  Serious: Yes (Other)
  Sender: FDA-Public Use
  Company Number: CA-US-EMD SERONO, INC.-7179953

PATIENT
  Sex: Female

DRUGS (3)
  1. GONAL-F RFF PEN [Suspect]
     Indication: IN VITRO FERTILISATION
     Route: 058
     Dates: start: 20121121
  2. CETROTIDE [Suspect]
     Indication: IN VITRO FERTILISATION
     Dosage: Vial
     Route: 058
     Dates: start: 20121128
  3. HEPARIN [Concomitant]
     Indication: PRODUCT USED FOR UNKNOWN INDICATION
     Route: 058

REACTIONS (1)
  - Vaginal haemorrhage [Unknown]
